FAERS Safety Report 7219521-1 (Version None)
Quarter: 2011Q1

REPORT INFORMATION
  Report Type: 
  Country: None (occurrence: None)
  Receive Date: 20110111
  Receipt Date: 20110105
  Transmission Date: 20110831
  Serious: Yes (Death, Hospitalization)
  Sender: FDA-Public Use
  Company Number: US-SANOFI-AVENTIS-200914435GDDC

PATIENT
  Sex: Female
  Weight: 69 kg

DRUGS (12)
  1. SPIRIVA [Concomitant]
     Dates: start: 20081031
  2. ZOFRAN [Concomitant]
     Dates: start: 20081017
  3. IPRATROPIUM BROMIDE/SALBUTAMOL SULFATE [Concomitant]
     Dates: start: 20080912
  4. ESOMEPRAZOLE [Concomitant]
     Dates: start: 20080912
  5. ATIVAN [Concomitant]
     Dates: start: 20081017
  6. CORTICOSTEROID NOS [Concomitant]
  7. CALTRATE [Concomitant]
     Dates: start: 20050401
  8. PLACEBO [Suspect]
     Indication: NON-SMALL CELL LUNG CANCER
     Dosage: DOSE UNIT: 6 MG/KG
     Route: 042
     Dates: start: 20090306, end: 20090306
  9. TYLENOL [Concomitant]
     Dates: start: 20080912
  10. DOCETAXEL [Suspect]
     Indication: NON-SMALL CELL LUNG CANCER
     Dosage: DOSE UNIT: 60 MG/M**2
     Route: 042
     Dates: start: 20090306, end: 20090306
  11. ADVAIR [Concomitant]
     Dates: start: 20080912
  12. VITAMIN D [Concomitant]
     Dates: start: 20050405

REACTIONS (1)
  - DYSPNOEA [None]
